FAERS Safety Report 6647996-5 (Version None)
Quarter: 2010Q1

REPORT INFORMATION
  Report Type: 
  Country: None (occurrence: None)
  Receive Date: 20100319
  Receipt Date: 20100308
  Transmission Date: 20100710
  Serious: Yes (Hospitalization)
  Sender: FDA-Public Use
  Company Number: 230189J09USA

PATIENT
  Age: 28 Year
  Sex: Female
  Weight: 101 kg

DRUGS (1)
  1. REBIF [Suspect]
     Indication: MULTIPLE SCLEROSIS
     Dosage: 44 MCG, 3 IN 1 WEEKS, SUBCUTANEOUS
     Route: 058
     Dates: start: 20090330, end: 20090401

REACTIONS (3)
  - NAUSEA [None]
  - PULMONARY THROMBOSIS [None]
  - VOMITING [None]
